FAERS Safety Report 23711251 (Version 1)
Quarter: 2024Q2

REPORT INFORMATION
  Report Type: Spontaneous
  Country: US (occurrence: None)
  Receive Date: 20240405
  Receipt Date: 20240405
  Transmission Date: 20240716
  Serious: Yes (Other)
  Sender: FDA-Public Use
  Company Number: US-Axsome Therapeutics, Inc.-AXS202402-000161

PATIENT
  Age: 60 Year
  Sex: Female

DRUGS (2)
  1. SUNOSI [Suspect]
     Active Substance: SOLRIAMFETOL
     Indication: Obstructive sleep apnoea syndrome
     Route: 048
     Dates: start: 2021
  2. SUNOSI [Suspect]
     Active Substance: SOLRIAMFETOL
     Dosage: CUTTING 150 MILLIGRAM TABLET IN HALF.
     Route: 048
     Dates: start: 2024

REACTIONS (8)
  - Dyspnoea [Unknown]
  - Sleep apnoea syndrome [Unknown]
  - Hypersomnia [Unknown]
  - COVID-19 [Unknown]
  - Intentional underdose [Unknown]
  - Wrong technique in product usage process [Unknown]
  - Insurance issue [Unknown]
  - Therapy interrupted [Unknown]

NARRATIVE: CASE EVENT DATE: 20210101
